FAERS Safety Report 21435242 (Version 1)
Quarter: 2022Q4

REPORT INFORMATION
  Report Type: Spontaneous
  Country: US (occurrence: None)
  Receive Date: 20221010
  Receipt Date: 20221010
  Transmission Date: 20230113
  Serious: No
  Sender: FDA-Public Use
  Company Number: 2022A334629

PATIENT

DRUGS (1)
  1. BYDUREON BCISE [Suspect]
     Active Substance: EXENATIDE
     Indication: Glucose tolerance impaired
     Route: 058

REACTIONS (3)
  - Injection site mass [Not Recovered/Not Resolved]
  - Off label use [Unknown]
  - Device connection issue [Unknown]
